FAERS Safety Report 5181588-2 (Version None)
Quarter: 2006Q4

REPORT INFORMATION
  Report Type: 
  Country: None (occurrence: None)
  Receive Date: 20061220
  Receipt Date: 20060207
  Transmission Date: 20070319
  Serious: Yes (Other)
  Sender: FDA-Public Use
  Company Number: US-GLAXOSMITHKLINE-A0592646A

PATIENT
  Age: 33 Year
  Sex: Male

DRUGS (1)
  1. COMMIT [Suspect]
     Dosage: 2MG AS REQUIRED
     Dates: start: 20050101

REACTIONS (2)
  - DRUG ABUSER [None]
  - GASTROOESOPHAGEAL REFLUX DISEASE [None]
